FAERS Safety Report 6305831-9 (Version None)
Quarter: 2009Q3

REPORT INFORMATION
  Report Type: 
  Country: None (occurrence: None)
  Receive Date: 20090812
  Receipt Date: 20090805
  Transmission Date: 20100115
  Serious: Yes (Hospitalization)
  Sender: FDA-Public Use
  Company Number: DE-ELI_LILLY_AND_COMPANY-DE200908000477

PATIENT
  Sex: Female
  Weight: 111.5 kg

DRUGS (18)
  1. PEMETREXED [Suspect]
     Dosage: 500 MG/M2, DAY 1 EVERY 21 DAYS
     Route: 042
     Dates: start: 20090730
  2. CETUXIMAB [Suspect]
     Dosage: 400 MG/M2, DAY 1 CYCLE ONE
     Route: 042
     Dates: start: 20090730
  3. CETUXIMAB [Suspect]
     Dosage: 250 MG/M2, WEEKLY (1/W)
     Route: 042
     Dates: start: 20090730
  4. CISPLATIN [Suspect]
     Dosage: 75 MG/M2 DAY 1 EVERY 21 DAYS
     Dates: start: 20090730
  5. FOLIC ACID [Concomitant]
     Indication: PROPHYLAXIS
     Dates: start: 20090706
  6. VITAMIN B-12 [Concomitant]
     Indication: PROPHYLAXIS
     Dates: start: 20090717
  7. ANTIHISTAMINES [Concomitant]
     Indication: PROPHYLAXIS
     Dates: start: 20090730, end: 20090730
  8. L-THYROXIN [Concomitant]
     Dates: start: 19960101
  9. TOREM [Concomitant]
     Dates: start: 20090501
  10. DELIX [Concomitant]
     Dates: start: 20090501
  11. CARMEN [Concomitant]
     Dates: start: 20090501
  12. BISOHEXAL [Concomitant]
     Dates: start: 20090501
  13. ARIXTRA [Concomitant]
     Dates: start: 20090622
  14. OXYGEN [Concomitant]
     Dates: start: 20090622
  15. LASIX [Concomitant]
     Dates: start: 20090728, end: 20090731
  16. EMEND [Concomitant]
     Dates: start: 20090730, end: 20090801
  17. CLEMASTINE FUMARATE [Concomitant]
     Dates: start: 20090730, end: 20090730
  18. KEVATRIL [Concomitant]
     Dates: start: 20090730, end: 20090730

REACTIONS (1)
  - PULMONARY EMBOLISM [None]
